FAERS Safety Report 13389153 (Version 1)
Quarter: 2017Q1

REPORT INFORMATION
  Report Type: Spontaneous
  Country: US (occurrence: US)
  Receive Date: 20170330
  Receipt Date: 20170330
  Transmission Date: 20170429
  Serious: No
  Sender: FDA-Public Use
  Company Number: US-BAYER-2017-060840

PATIENT
  Age: 46 Year
  Sex: Female

DRUGS (1)
  1. ULTRAVIST [Suspect]
     Active Substance: IOPROMIDE
     Indication: COMPUTERISED TOMOGRAM
     Dosage: 100 MG, ONCE
     Route: 041
     Dates: start: 20170328

REACTIONS (1)
  - Pruritus [None]

NARRATIVE: CASE EVENT DATE: 20170328
